FAERS Safety Report 21420644 (Version 2)
Quarter: 2022Q4

REPORT INFORMATION
  Report Type: Report from Study
  Country: US (occurrence: US)
  Receive Date: 20221007
  Receipt Date: 20221010
  Transmission Date: 20230113
  Serious: No
  Sender: FDA-Public Use
  Company Number: US-NOVARTISTESTPH-NVSC2022US226371

PATIENT
  Sex: Male
  Weight: 65.76 kg

DRUGS (1)
  1. TREPROSTINIL [Suspect]
     Active Substance: TREPROSTINIL
     Indication: Product used for unknown indication
     Dosage: 50 NG/KG/ MIN, CONTINUOUS
     Route: 042
     Dates: start: 20220729

REACTIONS (1)
  - Seasonal allergy [Unknown]
